FAERS Safety Report 14127288 (Version 1)
Quarter: 2017Q4

REPORT INFORMATION
  Report Type: Spontaneous
  Country: US (occurrence: US)
  Receive Date: 20171026
  Receipt Date: 20171026
  Transmission Date: 20180321
  Serious: Yes (Death, Other)
  Sender: FDA-Public Use
  Company Number: US-BIOVITRUM-2017US1002

PATIENT
  Age: 17 Year

DRUGS (8)
  1. PULSE STEROIDS [Concomitant]
     Active Substance: UNSPECIFIED INGREDIENT
  2. CYTOXAN [Concomitant]
     Active Substance: CYCLOPHOSPHAMIDE
  3. ENBREL [Concomitant]
     Active Substance: ETANERCEPT
  4. PREDNISONE. [Concomitant]
     Active Substance: PREDNISONE
     Dosage: 0.13 MG/KG/DAY
     Route: 048
  5. CYCLOSPORIN [Concomitant]
     Active Substance: CYCLOSPORINE
  6. KINERET [Suspect]
     Active Substance: ANAKINRA
     Indication: STILL^S DISEASE
     Dosage: 2 MG/KG/DAY
  7. PREDNISONE. [Concomitant]
     Active Substance: PREDNISONE
     Dosage: 0.33 MG/KG/D
     Route: 048
  8. PREDNISONE. [Concomitant]
     Active Substance: PREDNISONE
     Dosage: 0.1 TO 0.17MG/KG/D
     Route: 048

REACTIONS (5)
  - Eosinophil count increased [Unknown]
  - Pulmonary hypertension [Fatal]
  - Lung disorder [Unknown]
  - Lymphocyte count decreased [Unknown]
  - Rash [Unknown]

NARRATIVE: CASE EVENT DATE: 200701
